FAERS Safety Report 4772585-7 (Version None)
Quarter: 2005Q3

REPORT INFORMATION
  Report Type: 
  Country: None (occurrence: None)
  Receive Date: 20050916
  Receipt Date: 20050916
  Transmission Date: 20060218
  Serious: No
  Sender: FDA-Public Use
  Company Number: None

PATIENT
  Sex: Male
  Weight: 69.85 kg

DRUGS (12)
  1. CLOZAPINE [Suspect]
     Indication: BIPOLAR DISORDER
     Dosage: SEE IMAGE
     Route: 048
     Dates: start: 20050513, end: 20050831
  2. CLOZAPINE [Suspect]
     Indication: SCHIZOAFFECTIVE DISORDER
     Dosage: SEE IMAGE
     Route: 048
     Dates: start: 20050513, end: 20050831
  3. CLOZAPINE [Suspect]
     Indication: BIPOLAR DISORDER
     Dosage: SEE IMAGE
     Route: 048
     Dates: start: 20050513, end: 20050831
  4. CLOZAPINE [Suspect]
     Indication: SCHIZOAFFECTIVE DISORDER
     Dosage: SEE IMAGE
     Route: 048
     Dates: start: 20050513, end: 20050831
  5. FENOFIBRATE [Concomitant]
  6. KETOCONAZOLE [Concomitant]
  7. LACTULOSE [Concomitant]
  8. LEVOTHYROXINE SODIUM [Concomitant]
  9. QUETIAPINE FUMARATE [Concomitant]
  10. OMEPRAZOLE [Concomitant]
  11. SENNA [Concomitant]
  12. TRETINOIN-A [Concomitant]

REACTIONS (1)
  - NEUTROPHIL COUNT DECREASED [None]
